FAERS Safety Report 11361903 (Version 4)
Quarter: 2016Q1

REPORT INFORMATION
  Report Type: Report from Study
  Country: US (occurrence: US)
  Receive Date: 20150810
  Receipt Date: 20160302
  Transmission Date: 20160525
  Serious: Yes (Other)
  Sender: FDA-Public Use
  Company Number: US-JNJFOC-20150804162

PATIENT
  Age: 92 Year
  Sex: Female

DRUGS (33)
  1. REMICADE [Suspect]
     Active Substance: INFLIXIMAB
     Indication: COLITIS ULCERATIVE
     Dosage: 14 TH INFUSION
     Route: 042
  2. REMICADE [Suspect]
     Active Substance: INFLIXIMAB
     Indication: COLITIS ULCERATIVE
     Dosage: 11 TH INFUSION
     Route: 042
  3. IMURAN [Suspect]
     Active Substance: AZATHIOPRINE
     Indication: COLITIS ULCERATIVE
     Route: 048
     Dates: start: 20110415
  4. HYDROCHLOROTHIAZIDE. [Concomitant]
     Active Substance: HYDROCHLOROTHIAZIDE
     Indication: HYPERTENSION
     Route: 048
     Dates: start: 20110222
  5. XANAX [Concomitant]
     Active Substance: ALPRAZOLAM
     Dosage: AS NEEDED BEFORE PROCEDURE
     Route: 048
     Dates: start: 20121228
  6. REMICADE [Suspect]
     Active Substance: INFLIXIMAB
     Indication: COLITIS ULCERATIVE
     Dosage: 11 TH INFUSION
     Route: 042
  7. OMEPRAZOLE. [Concomitant]
     Active Substance: OMEPRAZOLE
     Dosage: BEFORE FOOD
     Route: 065
  8. CALCIUM W/VITAMIN D NOS [Concomitant]
     Active Substance: CALCIUM\VITAMIN D
     Dosage: 250 MG-200 UNIT TABLET
     Route: 065
     Dates: start: 20110310
  9. TYLENOL [Concomitant]
     Active Substance: ACETAMINOPHEN
     Dosage: PRE-INFUSION
     Route: 048
     Dates: start: 20130307
  10. REMICADE [Suspect]
     Active Substance: INFLIXIMAB
     Indication: COLITIS ULCERATIVE
     Route: 042
     Dates: start: 20130307
  11. REMICADE [Suspect]
     Active Substance: INFLIXIMAB
     Indication: COLITIS ULCERATIVE
     Dosage: 9 TH INFUSION
     Route: 042
  12. IMURAN [Suspect]
     Active Substance: AZATHIOPRINE
     Indication: COLITIS ULCERATIVE
     Route: 048
     Dates: start: 20140107
  13. CORTIFOAM [Concomitant]
     Active Substance: HYDROCORTISONE ACETATE
     Dosage: 80 INJECT DAILY MG
     Route: 054
     Dates: start: 20130627, end: 20140213
  14. BENADRYL [Concomitant]
     Active Substance: DIPHENHYDRAMINE HYDROCHLORIDE
     Route: 048
  15. REMICADE [Suspect]
     Active Substance: INFLIXIMAB
     Indication: COLITIS ULCERATIVE
     Dosage: 2 ND INFUSION
     Route: 042
  16. REMICADE [Suspect]
     Active Substance: INFLIXIMAB
     Indication: COLITIS ULCERATIVE
     Dosage: 2ND INFUSION
     Route: 042
  17. REMICADE [Suspect]
     Active Substance: INFLIXIMAB
     Indication: COLITIS ULCERATIVE
     Dosage: 12 TH INFUSION
     Route: 042
  18. REMICADE [Suspect]
     Active Substance: INFLIXIMAB
     Indication: COLITIS ULCERATIVE
     Dosage: 3TH INFUSION
     Route: 042
  19. REMICADE [Suspect]
     Active Substance: INFLIXIMAB
     Indication: COLITIS ULCERATIVE
     Dosage: 4TH INFUSION
     Route: 042
  20. REMICADE [Suspect]
     Active Substance: INFLIXIMAB
     Indication: COLITIS ULCERATIVE
     Dosage: 1 ST INFUSION
     Route: 042
  21. ALENDRONATE [Concomitant]
     Active Substance: ALENDRONATE SODIUM
     Dosage: IN THE MORNING, AT LEAST 30 MINUTES BEFORE THE FIRST FOOD, BEVERAGE, OR MEDICATION OF THE DAY
     Route: 048
     Dates: start: 20110310, end: 20140213
  22. BIFERA [Concomitant]
     Route: 048
  23. REMICADE [Suspect]
     Active Substance: INFLIXIMAB
     Indication: COLITIS ULCERATIVE
     Dosage: 13TH INFUSION
     Route: 042
  24. IMURAN [Suspect]
     Active Substance: AZATHIOPRINE
     Indication: COLITIS ULCERATIVE
     Route: 048
     Dates: start: 20110407
  25. NORTRIPTYLINE [Concomitant]
     Active Substance: NORTRIPTYLINE
     Indication: IRRITABLE BOWEL SYNDROME
     Dosage: 1-2 CAPSULE EVERY BEDTIME
     Route: 048
     Dates: start: 20130815
  26. REMICADE [Suspect]
     Active Substance: INFLIXIMAB
     Indication: COLITIS ULCERATIVE
     Dosage: 15TH INFUSION
     Route: 042
  27. MERCAPTOPURINE. [Suspect]
     Active Substance: MERCAPTOPURINE
     Indication: PRODUCT USED FOR UNKNOWN INDICATION
     Route: 065
  28. ALEVE [Concomitant]
     Active Substance: NAPROXEN SODIUM
     Route: 065
  29. CLARITIN [Concomitant]
     Active Substance: LORATADINE
     Dosage: PRE INFUSION
     Route: 065
     Dates: start: 20110307, end: 20140213
  30. REMICADE [Suspect]
     Active Substance: INFLIXIMAB
     Indication: COLITIS ULCERATIVE
     Dosage: 10 TH INFUSION
     Route: 042
  31. REMICADE [Suspect]
     Active Substance: INFLIXIMAB
     Indication: COLITIS ULCERATIVE
     Dosage: 8 TH INFUSION
     Route: 042
  32. NORTRIPTYLINE [Concomitant]
     Active Substance: NORTRIPTYLINE
     Indication: IRRITABLE BOWEL SYNDROME
     Route: 048
     Dates: start: 20110415
  33. POTASSIUM GLUCONATE [Concomitant]
     Active Substance: POTASSIUM GLUCONATE
     Indication: ELECTROLYTE SUBSTITUTION THERAPY
     Route: 065
     Dates: start: 20110310

REACTIONS (4)
  - Hypertension [Unknown]
  - Squamous cell carcinoma [Recovered/Resolved]
  - Sialoadenitis [Recovered/Resolved]
  - Actinic keratosis [Recovered/Resolved]

NARRATIVE: CASE EVENT DATE: 20150204
